FAERS Safety Report 5884485-X (Version None)
Quarter: 2008Q3

REPORT INFORMATION
  Report Type: 
  Country: None (occurrence: None)
  Receive Date: 20080911
  Receipt Date: 20080903
  Transmission Date: 20090109
  Serious: Yes (Other)
  Sender: FDA-Public Use
  Company Number: 20123

PATIENT
  Sex: Female

DRUGS (6)
  1. CYTARABINE [Suspect]
     Indication: MYCOSIS FUNGOIDES
  2. DOXORUBICIN HCL [Suspect]
     Indication: MYCOSIS FUNGOIDES
     Dosage: 50 MG/M2 PER_CYCLE IV
     Route: 042
  3. METHOTREXATE [Suspect]
     Indication: MYCOSIS FUNGOIDES
     Dosage: 1 G/M2 PER_CYCLE IV
     Route: 042
  4. VINCRISTINE [Suspect]
     Indication: MYCOSIS FUNGOIDES
     Dosage: 1.4 MG/M2 PER_CYCLE IV
     Route: 042
  5. CYCLOPHOSPHAMIDE [Suspect]
     Indication: MYCOSIS FUNGOIDES
     Dosage: 300 MG/M2 PER_CYCLE IV
     Route: 042
  6. DEXAMETHASONE [Suspect]
     Indication: MYCOSIS FUNGOIDES
     Dosage: 40 MG PER_CYCLE PO
     Route: 048

REACTIONS (2)
  - ACUTE MYELOID LEUKAEMIA [None]
  - MYELODYSPLASTIC SYNDROME [None]
